FAERS Safety Report 25486216 (Version 1)
Quarter: 2025Q2

REPORT INFORMATION
  Report Type: Report from Study
  Country: US (occurrence: US)
  Receive Date: 20250626
  Receipt Date: 20250626
  Transmission Date: 20250716
  Serious: No
  Sender: BIOGEN
  Company Number: US-BIOGEN-2025BI01314779

PATIENT
  Sex: Female

DRUGS (2)
  1. ZURZUVAE [Suspect]
     Active Substance: ZURANOLONE
     Indication: Perinatal depression
     Dosage: 2 25MG CAPSULES FOR 14 DAYS
     Route: 050
  2. ZURZUVAE [Suspect]
     Active Substance: ZURANOLONE
     Dosage: TO FINISH COURSE
     Route: 050

REACTIONS (1)
  - Sedation [Unknown]
